FAERS Safety Report 14244324 (Version 2)
Quarter: 2017Q4

REPORT INFORMATION
  Report Type: Spontaneous
  Country: US (occurrence: US)
  Receive Date: 20171201
  Receipt Date: 20171207
  Transmission Date: 20180321
  Serious: No
  Sender: FDA-Public Use
  Company Number: US-009507513-1711USA003985

PATIENT
  Age: 29 Year
  Sex: Female
  Weight: 121 kg

DRUGS (2)
  1. NEXPLANON [Suspect]
     Active Substance: ETONOGESTREL
     Dosage: 1 ROD, UNK
     Route: 059
     Dates: start: 20171108
  2. NEXPLANON [Suspect]
     Active Substance: ETONOGESTREL
     Indication: CONTRACEPTION
     Dosage: 1 ROD, IN THE RIGHT ARM.
     Route: 023
     Dates: start: 20151116, end: 20171103

REACTIONS (5)
  - Implant site irritation [Unknown]
  - Device expulsion [Recovered/Resolved]
  - Incorrect route of drug administration [Unknown]
  - Inappropriate schedule of drug administration [Unknown]
  - Implant site discolouration [Unknown]

NARRATIVE: CASE EVENT DATE: 20151116
